FAERS Safety Report 8474953 (Version 2)
Quarter: 2013Q3

REPORT INFORMATION
  Report Type: Spontaneous
  Country: US (occurrence: US)
  Receive Date: 20120323
  Receipt Date: 20130705
  Transmission Date: 20140515
  Serious: Yes (Hospitalization, Other)
  Sender: FDA-Public Use
  Company Number: US-B.I. PHARMACEUTICALS,INC./RIDGEFIELD-2012-EU-01528GD

PATIENT
  Age: 69 Year
  Sex: Male
  Weight: 113 kg

DRUGS (1)
  1. DABIGATRAN [Suspect]
     Dosage: 300 MG

REACTIONS (11)
  - Renal failure acute [Recovered/Resolved]
  - Hyperkalaemia [Recovered/Resolved]
  - Coagulopathy [Unknown]
  - Tachyarrhythmia [Unknown]
  - Atrial tachycardia [Unknown]
  - Ventricular tachycardia [Unknown]
  - Epistaxis [Unknown]
  - Contusion [Unknown]
  - Haemorrhage [Unknown]
  - Nausea [Unknown]
  - Decreased appetite [Unknown]
